FAERS Safety Report 9633531 (Version 4)
Quarter: 2014Q2

REPORT INFORMATION
  Report Type: Spontaneous
  Country: IN (occurrence: IN)
  Receive Date: 20131021
  Receipt Date: 20140408
  Transmission Date: 20141212
  Serious: Yes (Death, Other)
  Sender: FDA-Public Use
  Company Number: PHHY2013IN115450

PATIENT
  Age: 10 Year
  Sex: Male

DRUGS (5)
  1. CICLOSPORIN [Suspect]
     Indication: APLASTIC ANAEMIA
     Route: 048
  2. PREDNISOLONE [Suspect]
     Dosage: 1 MG/KG, UNK
  3. LEVETIRACETAM [Suspect]
     Indication: PROPHYLAXIS
  4. ATGAM [Suspect]
     Indication: APLASTIC ANAEMIA
     Dosage: 40 MG/KG, PER DAY
     Route: 042
  5. ANTIBIOTICS [Concomitant]
     Route: 042

REACTIONS (10)
  - Cardiac arrest [Fatal]
  - Cerebral haemorrhage [Unknown]
  - Subarachnoid haemorrhage [Unknown]
  - Hypertensive encephalopathy [Unknown]
  - Posterior reversible encephalopathy syndrome [Unknown]
  - Neck pain [Not Recovered/Not Resolved]
  - Headache [Unknown]
  - Generalised tonic-clonic seizure [Unknown]
  - Blood pressure increased [Recovered/Resolved]
  - Drug ineffective [Unknown]
